FAERS Safety Report 9110119 (Version 1)
Quarter: 2013Q1

REPORT INFORMATION
  Report Type: Spontaneous
  Country: SE (occurrence: SE)
  Receive Date: 20130222
  Receipt Date: 20130222
  Transmission Date: 20140127
  Serious: Yes (Other)
  Sender: FDA-Public Use
  Company Number: SE-JNJFOC-20130207859

PATIENT
  Age: 78 Year
  Sex: Female

DRUGS (5)
  1. XARELTO [Suspect]
     Indication: KNEE OPERATION
     Route: 048
     Dates: start: 20130114
  2. XARELTO [Suspect]
     Indication: THROMBOSIS PROPHYLAXIS
     Route: 048
     Dates: start: 20130114
  3. OXYCONTIN [Concomitant]
     Route: 065
     Dates: start: 20130114
  4. OXYNORM [Concomitant]
     Route: 065
     Dates: start: 20130114
  5. PANODIL [Concomitant]
     Route: 065
     Dates: start: 20130114

REACTIONS (3)
  - Post procedural haemorrhage [Unknown]
  - Haematoma [Unknown]
  - Joint swelling [Unknown]
